FAERS Safety Report 5153326-0 (Version None)
Quarter: 2006Q4

REPORT INFORMATION
  Report Type: 
  Country: None (occurrence: None)
  Receive Date: 20061116
  Receipt Date: 20061116
  Transmission Date: 20070319
  Serious: Yes (Life-Threatening, Hospitalization)
  Sender: FDA-Public Use
  Company Number: None

PATIENT
  Age: 82 Year
  Sex: Male
  Weight: 101.8 kg

DRUGS (4)
  1. COUMADIN [Suspect]
     Indication: ATRIAL FIBRILLATION
     Dosage: 3.5 MG DAILY PO
     Route: 048
     Dates: start: 20060620, end: 20060801
  2. COUMADIN [Suspect]
     Indication: ATRIAL THROMBOSIS
     Dosage: 3.5 MG DAILY PO
     Route: 048
     Dates: start: 20060620, end: 20060801
  3. PLAVIX [Suspect]
     Indication: STENT PLACEMENT
     Dosage: 75MG DAILY  PO
     Route: 048
     Dates: start: 20060712
  4. ASPIRIN [Suspect]
     Indication: STENT PLACEMENT
     Dosage: 325MG DAILY PO
     Route: 048
     Dates: start: 20060712

REACTIONS (6)
  - CARDIAC FLUTTER [None]
  - HAEMATOCRIT DECREASED [None]
  - HAEMORRHAGE [None]
  - MELAENA [None]
  - SYNCOPE [None]
  - WOUND SECRETION [None]
